FAERS Safety Report 17805284 (Version 1)
Quarter: 2020Q2

REPORT INFORMATION
  Report Type: Spontaneous
  Country: GB (occurrence: GB)
  Receive Date: 20200520
  Receipt Date: 20200520
  Transmission Date: 20200714
  Serious: Yes (Other)
  Sender: FDA-Public Use
  Company Number: GB-SA-2020SA124214

PATIENT
  Age: 63 Year
  Sex: Female

DRUGS (4)
  1. LEFLUNOMIDE. [Suspect]
     Active Substance: LEFLUNOMIDE
     Indication: RHEUMATOID ARTHRITIS
     Dosage: UNK
     Dates: start: 200305
  2. RISEDRONATE [Concomitant]
     Active Substance: RISEDRONATE SODIUM
  3. PREDNISOLONE. [Concomitant]
     Active Substance: PREDNISOLONE
     Dosage: 7.5 MG, QD
     Route: 048
  4. CALCIUM [Concomitant]
     Active Substance: CALCIUM

REACTIONS (6)
  - Erythema annulare [Recovered/Resolved]
  - Lymphocytic infiltration [Recovered/Resolved]
  - Subacute cutaneous lupus erythematosus [Recovered/Resolved]
  - Rash [Recovered/Resolved]
  - Skin atrophy [Recovered/Resolved]
  - Perivascular dermatitis [Recovered/Resolved]
